FAERS Safety Report 5069188-6 (Version None)
Quarter: 2006Q3

REPORT INFORMATION
  Report Type: 
  Country: None (occurrence: None)
  Receive Date: 20060803
  Receipt Date: 20060724
  Transmission Date: 20061208
  Serious: Yes (Other)
  Sender: FDA-Public Use
  Company Number: JP-JNJFOC-20060701753

PATIENT
  Sex: Female
  Weight: 78.1 kg

DRUGS (22)
  1. INFLIXIMAB, RECOMBINANT [Suspect]
     Dosage: BLINDED DOSAGE OF 3, 6 OR 10 MG/KG
     Route: 042
  2. INFLIXIMAB, RECOMBINANT [Suspect]
     Route: 042
  3. INFLIXIMAB, RECOMBINANT [Suspect]
     Route: 042
  4. INFLIXIMAB, RECOMBINANT [Suspect]
     Indication: RHEUMATOID ARTHRITIS
     Route: 042
  5. RHEUMATREX [Suspect]
     Route: 048
  6. RHEUMATREX [Suspect]
     Dosage: STARTED PRIOR TO 25-JAN-2006
     Route: 048
  7. RHEUMATREX [Suspect]
     Indication: RHEUMATOID ARTHRITIS
     Dosage: 4-10 MG/WEEK
     Route: 048
  8. SOLU-CORTEF [Concomitant]
     Route: 042
  9. SOLU-CORTEF [Concomitant]
     Route: 042
  10. SOLU-CORTEF [Concomitant]
     Route: 042
  11. SOLU-CORTEF [Concomitant]
     Indication: PROPHYLAXIS
     Route: 042
  12. FOLIAMIN [Concomitant]
     Route: 048
  13. FOLIAMIN [Concomitant]
     Indication: PROPHYLAXIS
     Dosage: BEFORE 28-OCT-2005, 5 MG/WEEK
     Route: 048
  14. PREDNISOLONE [Concomitant]
     Route: 048
  15. PREDNISOLONE [Concomitant]
     Indication: RHEUMATOID ARTHRITIS
     Dosage: INITIATED BEFORE STUDY TREATMENT
     Route: 048
  16. AZULFIDINE EN-TABS [Concomitant]
     Indication: RHEUMATOID ARTHRITIS
     Dosage: INITIATED BEFORE STUDY TREATMENT, DOSE IS 1000MG/DAY IN TWO DIVIDED DOSES
     Route: 048
  17. LOXONIN [Concomitant]
     Indication: RHEUMATOID ARTHRITIS
     Dosage: INITIATED BEFORE STUDY TREATMENT, DOSE 180MG/DAY IN THREE DIVIDED DOSES
     Route: 048
  18. SELEBEX [Concomitant]
     Indication: GASTROINTESTINAL DISORDER THERAPY
     Dosage: INITIATED BEFORE STUDY TREATMENT, DOSE 150 MG/DAY IN THREE DIVIDED DOSES
     Route: 048
  19. ACINON [Concomitant]
     Indication: GASTROINTESTINAL DISORDER THERAPY
     Dosage: INITIATED BEFORE STUDY TREATMENT DOSE IS 300 MG/DAY IN TWO DIVIDED DOSES
  20. GASLON N [Concomitant]
     Indication: GASTROINTESTINAL DISORDER THERAPY
     Dosage: INITIATED BEFORE STUDY TREATMENT, DOSE IS 4 MG/DAY IN TWO DIVIDED DOSES
     Route: 048
  21. ISONIAZID [Concomitant]
     Indication: ANTIBIOTIC PROPHYLAXIS
     Dosage: DOSE 300 MG IN THREE DIVIDED DOSES
     Route: 048
  22. AFTACH [Concomitant]
     Indication: STOMATITIS
     Dosage: DOSE ^ADEQUATE^
     Route: 061

REACTIONS (7)
  - CONDITION AGGRAVATED [None]
  - HYPERTENSION [None]
  - IMPAIRED HEALING [None]
  - MOUTH HAEMORRHAGE [None]
  - STOMATITIS [None]
  - TONGUE NEOPLASM MALIGNANT STAGE UNSPECIFIED [None]
  - TUBERCULOSIS SKIN TEST POSITIVE [None]
